FAERS Safety Report 6696657-5 (Version None)
Quarter: 2010Q2

REPORT INFORMATION
  Report Type: 
  Country: None (occurrence: None)
  Receive Date: 20100426
  Receipt Date: 20100414
  Transmission Date: 20101027
  Serious: Yes (Disabling)
  Sender: FDA-Public Use
  Company Number: FR-BAYER-201020419GPV

PATIENT
  Age: 62 Year
  Sex: Female

DRUGS (2)
  1. DIASTABOL [Suspect]
     Indication: TYPE 2 DIABETES MELLITUS
     Route: 048
     Dates: start: 19981126
  2. GLUCOR [Suspect]
     Indication: TYPE 2 DIABETES MELLITUS
     Route: 065

REACTIONS (8)
  - BLISTER [None]
  - CALCULUS URINARY [None]
  - HYPERSENSITIVITY [None]
  - LEUKOPENIA [None]
  - LOSS OF CONSCIOUSNESS [None]
  - METABOLIC DISORDER [None]
  - MUSCLE ATROPHY [None]
  - VOMITING [None]
